FAERS Safety Report 16097383 (Version 1)
Quarter: 2019Q1

REPORT INFORMATION
  Report Type: Spontaneous
  Country: US (occurrence: US)
  Receive Date: 20190320
  Receipt Date: 20190320
  Transmission Date: 20190418
  Serious: No
  Sender: FDA-Public Use
  Company Number: US-SHIRE-US201909026

PATIENT
  Sex: Female

DRUGS (1)
  1. XIIDRA [Suspect]
     Active Substance: LIFITEGRAST
     Indication: DRY EYE
     Route: 047

REACTIONS (4)
  - Instillation site reaction [Unknown]
  - Vision blurred [Unknown]
  - Retinal disorder [Unknown]
  - Instillation site pain [Unknown]
